FAERS Safety Report 9188457 (Version 1)
Quarter: 2012Q4

REPORT INFORMATION
  Report Type: 
  Country: ES (occurrence: ES)
  Receive Date: 20121205
  Receipt Date: 20121205
  Transmission Date: 20130627
  Serious: Yes (Hospitalization)
  Sender: FDA-Public Use
  Company Number: PHHY2012ES110658

PATIENT
  Age: 77 Year
  Sex: Male

DRUGS (6)
  1. EXELON PATCH [Suspect]
     Indication: DEMENTIA
     Dosage: 9.5 mg, Daily
     Route: 062
     Dates: start: 20120502, end: 20120917
  2. EUTIROX [Concomitant]
     Indication: HYPOTHYROIDISM
     Dosage: 125 ug, UNK
     Route: 048
  3. OMEPRAZOLE [Concomitant]
     Indication: PROPHYLAXIS
     Dosage: 20 mg, Daily
     Route: 048
  4. PREDNISONE [Concomitant]
     Dosage: 50 mg, Daily
     Route: 048
  5. ALLOPURINOL [Concomitant]
     Dosage: 300 mg, Daily
     Route: 048
  6. ACFOL [Concomitant]
     Dosage: 5 mg, Daily
     Route: 048

REACTIONS (1)
  - Anaemia haemolytic autoimmune [Unknown]
